FAERS Safety Report 19694560 (Version 4)
Quarter: 2025Q2

REPORT INFORMATION
  Report Type: Report from Study
  Country: US (occurrence: US)
  Receive Date: 20210813
  Receipt Date: 20250619
  Transmission Date: 20250716
  Serious: Yes (Hospitalization)
  Sender: SANOFI AVENTIS
  Company Number: US-SANOFI-00596263

PATIENT
  Age: 57 Year
  Sex: Male

DRUGS (8)
  1. DUPILUMAB [Suspect]
     Active Substance: DUPILUMAB
     Indication: Dermatitis atopic
     Route: 058
     Dates: start: 20210401, end: 20210401
  2. DUPILUMAB [Suspect]
     Active Substance: DUPILUMAB
     Dosage: 300 MG, QOW
     Route: 058
     Dates: start: 20210415, end: 2021
  3. DUPILUMAB [Suspect]
     Active Substance: DUPILUMAB
     Dosage: 300 MG, QOW
     Route: 058
     Dates: start: 20210512
  4. GABAPENTIN [Concomitant]
     Active Substance: GABAPENTIN
  5. DOXEPIN [Concomitant]
     Active Substance: DOXEPIN
  6. OXYCODONE [Concomitant]
     Active Substance: OXYCODONE
  7. IBUPROFEN [Concomitant]
     Active Substance: IBUPROFEN
  8. CYCLOBENZAPRINE [Concomitant]
     Active Substance: CYCLOBENZAPRINE

REACTIONS (4)
  - Road traffic accident [Recovering/Resolving]
  - Tibia fracture [Recovering/Resolving]
  - Incorrect product administration duration [Unknown]
  - Product dose omission issue [Unknown]

NARRATIVE: CASE EVENT DATE: 20210422
